FAERS Safety Report 6710021-1 (Version None)
Quarter: 2010Q2

REPORT INFORMATION
  Report Type: 
  Country: None (occurrence: None)
  Receive Date: 20100503
  Receipt Date: 20100503
  Transmission Date: 20101027
  Serious: Yes (Other)
  Sender: FDA-Public Use
  Company Number: None

PATIENT
  Age: 48 Year
  Sex: Female
  Weight: 70.3075 kg

DRUGS (1)
  1. AQUAFRESH ISO-ACTIVE FRESH IMPACT GLAXOSMITHKLINE [Suspect]
     Indication: DENTAL DISORDER PROPHYLAXIS
     Dosage: PEA-SIZED AMOUNT ONCE A DAY DENTAL
     Route: 004
     Dates: start: 20100421, end: 20100425

REACTIONS (3)
  - PAIN [None]
  - SWOLLEN TONGUE [None]
  - TONGUE BLISTERING [None]
